FAERS Safety Report 6649444-8 (Version None)
Quarter: 2010Q1

REPORT INFORMATION
  Report Type: 
  Country: None (occurrence: None)
  Receive Date: 20100324
  Receipt Date: 20100315
  Transmission Date: 20100710
  Serious: Yes (Other)
  Sender: FDA-Public Use
  Company Number: US-JNJFOC-20091207874

PATIENT
  Sex: Female

DRUGS (2)
  1. TYLENOL [Suspect]
  2. TYLENOL [Suspect]
     Indication: PAIN

REACTIONS (5)
  - GASTRIC DISORDER [None]
  - HAEMATOMA [None]
  - HAEMORRHAGE [None]
  - NAUSEA [None]
  - PRODUCT QUALITY ISSUE [None]
